FAERS Safety Report 5018542-7 (Version None)
Quarter: 2006Q2

REPORT INFORMATION
  Report Type: 
  Country: None (occurrence: None)
  Receive Date: 20060605
  Receipt Date: 20060529
  Transmission Date: 20061013
  Serious: Yes (Other)
  Sender: FDA-Public Use
  Company Number: CH-MERCK-0605CHE00013

PATIENT
  Age: 71 Year
  Sex: Male
  Weight: 100 kg

DRUGS (8)
  1. SINGULAIR [Suspect]
     Indication: CHRONIC OBSTRUCTIVE PULMONARY DISEASE
     Route: 048
     Dates: start: 20060331, end: 20060518
  2. ASPIRIN [Concomitant]
     Route: 048
  3. PLAVIX [Concomitant]
     Route: 048
  4. BELOC-ZOK [Concomitant]
     Route: 048
  5. FUROSEMIDE AND SPIRONOLACTONE [Concomitant]
     Route: 048
  6. ZOCOR [Concomitant]
     Route: 048
  7. PANTOPRAZOLE [Concomitant]
     Route: 048
  8. SERETIDE [Concomitant]
     Route: 055

REACTIONS (4)
  - HYPERHIDROSIS [None]
  - MUSCLE SPASMS [None]
  - MYOCLONUS [None]
  - TREMOR [None]
